FAERS Safety Report 5769152-5 (Version None)
Quarter: 2008Q2

REPORT INFORMATION
  Report Type: 
  Country: None (occurrence: None)
  Receive Date: 20080610
  Receipt Date: 20080527
  Transmission Date: 20081010
  Serious: Yes (Life-Threatening, Hospitalization)
  Sender: FDA-Public Use
  Company Number: 001171

PATIENT
  Age: 81 Year
  Sex: Male

DRUGS (12)
  1. PLETAL [Suspect]
     Indication: AORTIC ANEURYSM
     Dosage: 200 MG, DAILY DOSE ORAL; 200 MG, DAILY; ORAL
     Route: 048
     Dates: start: 20080204, end: 20080416
  2. PLETAL [Suspect]
     Indication: ARTERIOSCLEROSIS OBLITERANS
     Dosage: 200 MG, DAILY DOSE ORAL; 200 MG, DAILY; ORAL
     Route: 048
     Dates: start: 20080204, end: 20080416
  3. PLETAL [Suspect]
     Indication: AORTIC ANEURYSM
     Dosage: 200 MG, DAILY DOSE ORAL; 200 MG, DAILY; ORAL
     Route: 048
     Dates: start: 20080204, end: 20080416
  4. PLETAL [Suspect]
     Indication: ARTERIOSCLEROSIS OBLITERANS
     Dosage: 200 MG, DAILY DOSE ORAL; 200 MG, DAILY; ORAL
     Route: 048
     Dates: start: 20080204, end: 20080416
  5. AVISHOT (NAFTOPIDIL) TABLET [Concomitant]
  6. DIOVAN [Concomitant]
  7. CALTAN (PRECIPITATED CALCIUM CARBONATE) TABLET [Concomitant]
  8. CORINAEL L (NIFEDIPINE) TABLET [Concomitant]
  9. AMOBAN (ZOPICLONE) TABLET [Concomitant]
  10. CARVEDILOL [Concomitant]
  11. LASIX [Concomitant]
  12. HALFDIGOXIN (DIGOXINT) TABLET [Concomitant]

REACTIONS (4)
  - ATRIAL FIBRILLATION [None]
  - VENTRICULAR EXTRASYSTOLES [None]
  - VENTRICULAR FIBRILLATION [None]
  - VENTRICULAR TACHYCARDIA [None]
